FAERS Safety Report 11352972 (Version 1)
Quarter: 2015Q3

REPORT INFORMATION
  Report Type: Spontaneous
  Country: US (occurrence: US)
  Receive Date: 20150807
  Receipt Date: 20150807
  Transmission Date: 20151125
  Serious: No
  Sender: FDA-Public Use
  Company Number: US-JNJFOC-20150206479

PATIENT
  Age: 54 Year
  Sex: Female
  Weight: 61.24 kg

DRUGS (8)
  1. RESTASIS [Concomitant]
     Active Substance: CYCLOSPORINE
     Indication: PRODUCT USED FOR UNKNOWN INDICATION
     Route: 065
  2. ACACIA. [Concomitant]
     Active Substance: ACACIA
     Route: 065
  3. CALCIUM [Concomitant]
     Active Substance: CALCIUM
     Indication: ROUTINE HEALTH MAINTENANCE
     Route: 065
  4. WOMENS ROGAINE [Suspect]
     Active Substance: MINOXIDIL
     Indication: ALOPECIA
     Route: 061
     Dates: start: 20141117, end: 20150210
  5. EMERGEN C [Concomitant]
     Active Substance: MINERALS\VITAMINS
     Indication: VITAMIN C
     Route: 065
  6. WOMENS ROGAINE [Suspect]
     Active Substance: MINOXIDIL
     Route: 061
  7. NASONEX [Concomitant]
     Active Substance: MOMETASONE FUROATE
     Indication: NASAL DISORDER
     Route: 045
  8. OTHER THERAPEUTICS [Concomitant]
     Indication: ROUTINE HEALTH MAINTENANCE
     Route: 065

REACTIONS (1)
  - Hair growth abnormal [Recovering/Resolving]

NARRATIVE: CASE EVENT DATE: 201501
